FAERS Safety Report 11926130 (Version 3)
Quarter: 2016Q1

REPORT INFORMATION
  Report Type: Spontaneous
  Country: US (occurrence: US)
  Receive Date: 20160119
  Receipt Date: 20160216
  Transmission Date: 20160526
  Serious: Yes (Hospitalization, Other)
  Sender: FDA-Public Use
  Company Number: US-HOSPIRA-3138788

PATIENT
  Age: 29 Year
  Sex: Male
  Weight: 102.5 kg

DRUGS (21)
  1. CYTOXAN [Suspect]
     Active Substance: CYCLOPHOSPHAMIDE
     Indication: PRODUCT USED FOR UNKNOWN INDICATION
  2. CELLCEPT [Suspect]
     Active Substance: MYCOPHENOLATE MOFETIL\MYCOPHENOLATE MOFETIL HYDROCHLORIDE
     Indication: PRODUCT USED FOR UNKNOWN INDICATION
     Dates: start: 20150522
  3. TACROLIMUS. [Suspect]
     Active Substance: TACROLIMUS
     Indication: PHOTOPHERESIS
     Dosage: DAILY
     Route: 048
     Dates: start: 20151217
  4. BUDESONIDE. [Suspect]
     Active Substance: BUDESONIDE
     Indication: PRODUCT USED FOR UNKNOWN INDICATION
     Dates: start: 20150522
  5. BUDESONIDE. [Suspect]
     Active Substance: BUDESONIDE
     Indication: PRODUCT USED FOR UNKNOWN INDICATION
     Route: 048
     Dates: start: 20151019
  6. CYTARABINE. [Suspect]
     Active Substance: CYTARABINE
     Indication: PRODUCT USED FOR UNKNOWN INDICATION
     Dates: start: 20141028, end: 20141103
  7. NEULASTA [Concomitant]
     Active Substance: PEGFILGRASTIM
     Indication: PRODUCT USED FOR UNKNOWN INDICATION
     Dates: start: 20141211
  8. VALCYTE [Suspect]
     Active Substance: VALGANCICLOVIR HYDROCHLORIDE
     Indication: CYTOMEGALOVIRUS VIRAEMIA
  9. CYTARABINE. [Suspect]
     Active Substance: CYTARABINE
     Indication: PRODUCT USED FOR UNKNOWN INDICATION
     Dates: start: 20141205, end: 20141210
  10. BUDESONIDE. [Suspect]
     Active Substance: BUDESONIDE
     Indication: PRODUCT USED FOR UNKNOWN INDICATION
  11. SIROLIMUS. [Suspect]
     Active Substance: SIROLIMUS
     Indication: PHOTOPHERESIS
     Dosage: DAILY
     Route: 048
     Dates: start: 20160104
  12. NEULASTA [Concomitant]
     Active Substance: PEGFILGRASTIM
     Indication: PRODUCT USED FOR UNKNOWN INDICATION
     Dates: start: 20150113
  13. ANTITHYMOCYTE IMMUNOGLOBULIN [Suspect]
     Active Substance: THYMOCYTE IMMUNE GLOBULIN NOS
     Indication: PRODUCT USED FOR UNKNOWN INDICATION
  14. DAUNORUBICIN [Suspect]
     Active Substance: DAUNORUBICIN
     Indication: PRODUCT USED FOR UNKNOWN INDICATION
     Dates: start: 20141028, end: 20141103
  15. RECLAST [Concomitant]
     Active Substance: ZOLEDRONIC ACID
     Indication: PRODUCT USED FOR UNKNOWN INDICATION
     Dates: start: 20151217
  16. SIROLIMUS. [Suspect]
     Active Substance: SIROLIMUS
     Indication: PHOTOPHERESIS
     Dosage: DAILY
     Route: 048
     Dates: start: 20160104
  17. CYTARABINE. [Suspect]
     Active Substance: CYTARABINE
     Indication: PRODUCT USED FOR UNKNOWN INDICATION
     Dates: start: 20150107, end: 20150112
  18. METHOTREXATE [Suspect]
     Active Substance: METHOTREXATE
     Indication: PROPHYLAXIS
     Route: 037
  19. BUSULFAN [Suspect]
     Active Substance: BUSULFAN
     Indication: PRODUCT USED FOR UNKNOWN INDICATION
  20. TACROLIMUS. [Suspect]
     Active Substance: TACROLIMUS
     Indication: GRAFT VERSUS HOST DISEASE
     Dosage: DAILY
     Route: 048
     Dates: start: 20151217
  21. METHOTREXATE [Suspect]
     Active Substance: METHOTREXATE
     Indication: GRAFT VERSUS HOST DISEASE
     Route: 037

REACTIONS (48)
  - Cough [Recovered/Resolved]
  - Dyspnoea [Unknown]
  - Osteopenia [Unknown]
  - Asthenia [Unknown]
  - Graft versus host disease in skin [Unknown]
  - Fluid overload [Unknown]
  - Hypogammaglobulinaemia [Unknown]
  - Cellulitis [Unknown]
  - Epstein-Barr viraemia [Recovered/Resolved with Sequelae]
  - Pyrexia [Unknown]
  - Wheezing [Unknown]
  - Catheter site erythema [Unknown]
  - Sciatica [Unknown]
  - Dizziness [Unknown]
  - Road traffic accident [Unknown]
  - Device related infection [Unknown]
  - Rhinorrhoea [Unknown]
  - Condition aggravated [Unknown]
  - Cytomegalovirus viraemia [Unknown]
  - Pneumonia [Unknown]
  - Febrile neutropenia [Unknown]
  - Nausea [Unknown]
  - Diarrhoea [Unknown]
  - Bone marrow failure [Unknown]
  - Catheter site related reaction [Unknown]
  - Mucosal inflammation [Unknown]
  - Pancytopenia [Unknown]
  - Bronchopulmonary aspergillosis [Unknown]
  - Vomiting [Unknown]
  - Migraine [Unknown]
  - Graft versus host disease in gastrointestinal tract [Unknown]
  - Spinal compression fracture [Unknown]
  - Rash pruritic [Unknown]
  - Infection [Unknown]
  - Chest pain [Unknown]
  - Drug ineffective [Unknown]
  - Catheter site dryness [Unknown]
  - Muscle spasms [Unknown]
  - Pain in extremity [Unknown]
  - Depression [Unknown]
  - Klebsiella sepsis [Unknown]
  - Cushingoid [Unknown]
  - Electrolyte depletion [Unknown]
  - Transaminases increased [Unknown]
  - Pain [Unknown]
  - Musculoskeletal chest pain [Unknown]
  - Fall [Unknown]
  - Dyspnoea exertional [Unknown]

NARRATIVE: CASE EVENT DATE: 20151211
